FAERS Safety Report 5707079-5 (Version None)
Quarter: 2008Q2

REPORT INFORMATION
  Report Type: 
  Country: None (occurrence: None)
  Receive Date: 20080414
  Receipt Date: 20080414
  Transmission Date: 20081010
  Serious: Yes (Other)
  Sender: FDA-Public Use
  Company Number: None

PATIENT
  Sex: Male
  Weight: 63.5036 kg

DRUGS (1)
  1. SINGULAIR [Suspect]
     Indication: ASTHMA
     Dosage: ONE TABLET DAILY
     Dates: start: 20041031, end: 20080409

REACTIONS (5)
  - ABDOMINAL PAIN UPPER [None]
  - DEPRESSION [None]
  - HALLUCINATION [None]
  - HEADACHE [None]
  - MUSCLE SPASMS [None]
